FAERS Safety Report 6696502-8 (Version None)
Quarter: 2010Q2

REPORT INFORMATION
  Report Type: 
  Country: None (occurrence: None)
  Receive Date: 20100426
  Receipt Date: 20100421
  Transmission Date: 20101027
  Serious: Yes (Hospitalization)
  Sender: FDA-Public Use
  Company Number: CH-ROCHE-698627

PATIENT
  Age: 60 Year
  Sex: Female

DRUGS (16)
  1. RIVOTRIL [Suspect]
     Indication: DRUG USE FOR UNKNOWN INDICATION
     Dosage: LONG TERM
     Route: 048
  2. NEURONTIN [Suspect]
     Indication: FACIAL NEURALGIA
     Route: 048
     Dates: start: 20100129, end: 20100215
  3. NEURONTIN [Suspect]
     Dosage: AS NECESSARY TO A MAXIMUM DOSE OF 500 MG
     Route: 048
     Dates: start: 20100215
  4. TEGRETOL [Suspect]
     Indication: FACIAL NEURALGIA
     Route: 048
     Dates: start: 20100204, end: 20100223
  5. TEGRETOL [Suspect]
     Dosage: SHORT TERM
     Route: 048
     Dates: start: 20100224
  6. TRYPTIZOL [Suspect]
     Indication: FACIAL NEURALGIA
     Dosage: SHORT TERM
     Route: 048
     Dates: start: 20100209
  7. DAFALGAN [Suspect]
     Indication: DRUG USE FOR UNKNOWN INDICATION
     Dosage: LONG TERM
     Route: 048
     Dates: end: 20100224
  8. VITARUBIN [Concomitant]
     Dosage: LONG TERM
     Route: 048
  9. FOLIC ACID [Concomitant]
     Dosage: LONG TERM
     Route: 048
  10. DIAMICRON [Concomitant]
     Dosage: LONG TERM
     Route: 048
  11. NOVORAPID [Concomitant]
  12. INSULATARD [Concomitant]
  13. CLEXANE [Concomitant]
     Dosage: LONG TERM
     Route: 048
  14. SINTROM [Concomitant]
     Dosage: LONG TERM
  15. MOVICOL [Concomitant]
     Dosage: LONG TERM
     Route: 048
  16. NEURODOL [Concomitant]
     Route: 003

REACTIONS (1)
  - HEPATOCELLULAR INJURY [None]
